FAERS Safety Report 11143563 (Version 2)
Quarter: 2015Q2

REPORT INFORMATION
  Report Type: Spontaneous
  Country: GB (occurrence: GB)
  Receive Date: 20150526
  Receipt Date: 20150529
  Transmission Date: 20150821
  Serious: Yes (Hospitalization, Other)
  Sender: FDA-Public Use
  Company Number: GB-PFIZER INC-2015166585

PATIENT
  Age: 65 Year
  Sex: Male
  Weight: 103 kg

DRUGS (7)
  1. EPIRUBICIN HCL [Suspect]
     Active Substance: EPIRUBICIN HYDROCHLORIDE
     Indication: ADENOCARCINOMA GASTRIC
     Dosage: 110 MG, UNK
     Route: 042
     Dates: start: 20100709
  2. SIMVASTATIN. [Concomitant]
     Active Substance: SIMVASTATIN
     Dosage: 20 MG, UNK
  3. XELODA [Suspect]
     Active Substance: CAPECITABINE
     Indication: ADENOCARCINOMA GASTRIC
     Dosage: 2500 MG
     Route: 048
     Dates: start: 20100709
  4. AVASTIN [Suspect]
     Active Substance: BEVACIZUMAB
     Indication: ADENOCARCINOMA GASTRIC
     Dosage: DOSE: 775
     Route: 042
     Dates: start: 20100709
  5. LANSOPRAZOLE. [Concomitant]
     Active Substance: LANSOPRAZOLE
     Dosage: 30 MG, UNK
  6. CISPLATIN. [Suspect]
     Active Substance: CISPLATIN
     Indication: ADENOCARCINOMA GASTRIC
     Dosage: 132 MG
     Route: 042
     Dates: start: 20100709
  7. LISINOPRIL. [Concomitant]
     Active Substance: LISINOPRIL
     Dosage: 3 MG, UNK

REACTIONS (4)
  - Mucosal inflammation [Recovered/Resolved]
  - Neutropenic sepsis [Recovered/Resolved]
  - Pyrexia [Unknown]
  - Malaise [Unknown]

NARRATIVE: CASE EVENT DATE: 20100726
